FAERS Safety Report 18927992 (Version 1)
Quarter: 2021Q1

REPORT INFORMATION
  Report Type: Spontaneous
  Country: IN (occurrence: IN)
  Receive Date: 20210223
  Receipt Date: 20210223
  Transmission Date: 20210420
  Serious: Yes (Life-Threatening, Hospitalization)
  Sender: FDA-Public Use
  Company Number: IN-MYLANLABS-2021M1011245

PATIENT
  Age: 20 Year
  Sex: Female

DRUGS (2)
  1. EPINEPHRINE. [Suspect]
     Active Substance: EPINEPHRINE
     Indication: DISTRIBUTIVE SHOCK
     Dosage: UNK
  2. NORADRENALINE                      /00127501/ [Suspect]
     Active Substance: NOREPINEPHRINE
     Indication: DISTRIBUTIVE SHOCK
     Dosage: UNK

REACTIONS (1)
  - Drug ineffective [Unknown]
